FAERS Safety Report 8144751-4 (Version None)
Quarter: 2012Q1

REPORT INFORMATION
  Report Type: 
  Country: None (occurrence: None)
  Receive Date: 20120217
  Receipt Date: 20120210
  Transmission Date: 20120608
  Serious: Yes (Hospitalization, Other)
  Sender: FDA-Public Use
  Company Number: US-BAYER-2011-074167

PATIENT
  Age: 27 Year
  Sex: Female
  Weight: 95.238 kg

DRUGS (11)
  1. YASMIN [Suspect]
     Indication: CONTRACEPTION
     Dosage: UNK
     Dates: start: 20051201, end: 20060801
  2. YASMIN [Suspect]
     Indication: PROPHYLAXIS
  3. YAZ [Suspect]
     Indication: MENORRHAGIA
  4. MULTI-VITAMIN [Concomitant]
     Dosage: UNK UNK, QD
     Route: 048
  5. YAZ [Suspect]
     Indication: PROPHYLAXIS
  6. YASMIN [Suspect]
     Indication: MENORRHAGIA
     Dosage: UNK
     Dates: start: 20061001, end: 20090101
  7. PREDNISONE [Concomitant]
     Indication: IDIOPATHIC THROMBOCYTOPENIC PURPURA
     Dosage: 7.5 MG, QD
     Route: 048
     Dates: start: 20000101
  8. DIAZEPAM [Concomitant]
     Dosage: 5 MG, QD
     Route: 048
  9. ZANTAC [Concomitant]
     Dosage: 150 MG, QD
     Route: 048
  10. CALCIUM [Concomitant]
     Dosage: 150 MG, QD
     Route: 048
  11. YAZ [Suspect]
     Indication: CONTRACEPTION
     Dosage: UNK
     Dates: start: 20060801, end: 20060901

REACTIONS (8)
  - GALLBLADDER DISORDER [None]
  - HEPATIC NEOPLASM MALIGNANT [None]
  - PAIN [None]
  - ANXIETY [None]
  - EMOTIONAL DISTRESS [None]
  - LIVER INJURY [None]
  - CHOLECYSTITIS CHRONIC [None]
  - ANHEDONIA [None]
